FAERS Safety Report 10075758 (Version 1)
Quarter: 2014Q2

REPORT INFORMATION
  Report Type: Spontaneous
  Country: US (occurrence: US)
  Receive Date: 20140414
  Receipt Date: 20140414
  Transmission Date: 20141212
  Serious: Yes (Hospitalization)
  Sender: FDA-Public Use
  Company Number: US-BAYER-2014-052814

PATIENT
  Age: 20 Year
  Sex: Female

DRUGS (10)
  1. YASMIN [Suspect]
  2. OCELLA [Suspect]
  3. ONDANSETRON [Concomitant]
     Dosage: UNK
     Dates: start: 20090309
  4. CIPROFLOXACIN [Concomitant]
     Dosage: UNK
     Dates: start: 20090309
  5. FLUOCINOLONE ACETONIDE [Concomitant]
     Dosage: UNK
     Dates: start: 20090309
  6. METRONIDAZOLE [Concomitant]
     Dosage: UNK
     Dates: start: 20090313
  7. LEVAQUIN [Concomitant]
     Dosage: UNK
     Dates: start: 20090313
  8. ACETAMINOPHEN W/OXYCODONE [Concomitant]
     Dosage: UNK
     Dates: start: 20090313
  9. HYDROCODONE W/ACETAMINOPHEN [Concomitant]
     Dosage: UNK
     Dates: start: 20090323
  10. PERCOCET [Concomitant]

REACTIONS (4)
  - Pulmonary embolism [None]
  - Pelvic venous thrombosis [None]
  - Deep vein thrombosis [None]
  - Thrombophlebitis superficial [None]
